FAERS Safety Report 7908917-8 (Version None)
Quarter: 2011Q4

REPORT INFORMATION
  Report Type: 
  Country: None (occurrence: None)
  Receive Date: 20111111
  Receipt Date: 20111031
  Transmission Date: 20120403
  Serious: Yes (Hospitalization)
  Sender: FDA-Public Use
  Company Number: FR-BRISTOL-MYERS SQUIBB COMPANY-16222895

PATIENT
  Age: 60 Year
  Sex: Male

DRUGS (4)
  1. ERBITUX [Suspect]
     Indication: HYPOPHARYNGEAL CANCER
     Route: 042
     Dates: start: 20110321, end: 20110802
  2. POLARAMINE [Concomitant]
     Indication: PREMEDICATION
     Dosage: SOLUTION FOR INJECTION,1DF:5MG/1ML
     Route: 042
     Dates: start: 20110321, end: 20110802
  3. FLUOROURACIL [Suspect]
     Indication: HYPOPHARYNGEAL CANCER
     Dosage: 1DF:6550MG/96 HRS
     Route: 042
     Dates: start: 20110321, end: 20110719
  4. CISPLATIN [Suspect]
     Indication: HYPOPHARYNGEAL CANCER
     Dosage: SOLUTION FOR INJECTION
     Route: 042
     Dates: start: 20110321, end: 20110719

REACTIONS (7)
  - CLOSTRIDIAL INFECTION [None]
  - CIRCULATORY COLLAPSE [None]
  - LUNG NEOPLASM [None]
  - PNEUMOTHORAX [None]
  - PLEURAL EFFUSION [None]
  - SEPTIC SHOCK [None]
  - PLEURAL INFECTION BACTERIAL [None]
